FAERS Safety Report 12812607 (Version 3)
Quarter: 2016Q4

REPORT INFORMATION
  Report Type: Report from Study
  Country: US (occurrence: US)
  Receive Date: 20161005
  Receipt Date: 20161111
  Transmission Date: 20170207
  Serious: Yes (Death, Hospitalization)
  Sender: FDA-Public Use
  Company Number: US-JNJFOC-20160915601

PATIENT
  Sex: Female

DRUGS (2)
  1. IMBRUVICA [Suspect]
     Active Substance: IBRUTINIB
     Indication: CHRONIC LYMPHOCYTIC LEUKAEMIA
     Dosage: 560 MG QD
     Route: 048
     Dates: start: 20160713, end: 20161025
  2. IMBRUVICA [Suspect]
     Active Substance: IBRUTINIB
     Indication: MANTLE CELL LYMPHOMA
     Dosage: 560 MG QD
     Route: 048
     Dates: start: 20160713, end: 20161025

REACTIONS (5)
  - Bacterial infection [Unknown]
  - Nausea [Not Recovered/Not Resolved]
  - Death [Fatal]
  - Diarrhoea [Not Recovered/Not Resolved]
  - Myocardial infarction [Recovered/Resolved]
